FAERS Safety Report 11541177 (Version 9)
Quarter: 2016Q3

REPORT INFORMATION
  Report Type: Report from Study
  Country: US (occurrence: US)
  Receive Date: 20150923
  Receipt Date: 20160817
  Transmission Date: 20161109
  Serious: Yes (Death, Hospitalization)
  Sender: FDA-Public Use
  Company Number: US-ACTELION-A-NJ2015-123878

PATIENT
  Age: 49 Year
  Sex: Female

DRUGS (5)
  1. COUMADIN [Concomitant]
     Active Substance: WARFARIN SODIUM
  2. OPSUMIT [Suspect]
     Active Substance: MACITENTAN
     Indication: PULMONARY HYPERTENSION
     Dosage: 10 MG, QD
     Route: 048
     Dates: start: 20140908
  3. REVATIO [Concomitant]
     Active Substance: SILDENAFIL CITRATE
  4. RIOCIGUAT [Concomitant]
     Active Substance: RIOCIGUAT
  5. VELETRI [Suspect]
     Active Substance: EPOPROSTENOL
     Indication: PULMONARY HYPERTENSION
     Dosage: 100 NG/KG, PER MIN
     Route: 042
     Dates: start: 20110110

REACTIONS (16)
  - Oxygen saturation decreased [Unknown]
  - Oedema [Not Recovered/Not Resolved]
  - Death [Fatal]
  - Drain placement [Unknown]
  - Platelet count decreased [Unknown]
  - Transfusion [Unknown]
  - Dyspnoea [Unknown]
  - Asthenia [Not Recovered/Not Resolved]
  - Renal impairment [Unknown]
  - Pulmonary hypertension [Unknown]
  - Fluid retention [Unknown]
  - Fluid overload [Unknown]
  - Nausea [Unknown]
  - Abdominal distension [Unknown]
  - Peripheral swelling [Unknown]
  - Vomiting [Unknown]

NARRATIVE: CASE EVENT DATE: 20160805
